FAERS Safety Report 15331810 (Version 3)
Quarter: 2018Q4

REPORT INFORMATION
  Report Type: Report from Study
  Country: TW (occurrence: TW)
  Receive Date: 20180829
  Receipt Date: 20181112
  Transmission Date: 20190204
  Serious: Yes (Death, Life-Threatening, Hospitalization, Other)
  Sender: FDA-Public Use
  Company Number: TW-BRISTOL-MYERS SQUIBB COMPANY-BMS-2018-072257

PATIENT
  Age: 69 Year
  Sex: Female

DRUGS (1)
  1. ABATACEPT [Suspect]
     Active Substance: ABATACEPT
     Indication: RHEUMATOID ARTHRITIS
     Dosage: 500 MG, QMO
     Route: 042
     Dates: start: 20121228, end: 20180713

REACTIONS (4)
  - Cardiac disorder [Unknown]
  - Renal impairment [Unknown]
  - Hepatic function abnormal [Unknown]
  - Breast neoplasm [Fatal]

NARRATIVE: CASE EVENT DATE: 20121228
